FAERS Safety Report 21135291 (Version 1)
Quarter: 2022Q3

REPORT INFORMATION
  Report Type: Spontaneous
  Country: GB (occurrence: GB)
  Receive Date: 20220727
  Receipt Date: 20220727
  Transmission Date: 20221027
  Serious: Yes (Other)
  Sender: FDA-Public Use
  Company Number: None

PATIENT
  Sex: Female

DRUGS (1)
  1. SAXENDA [Suspect]
     Active Substance: LIRAGLUTIDE
     Indication: Product used for unknown indication
     Dosage: 6MG/ML

REACTIONS (10)
  - Rash pruritic [Unknown]
  - Hyperhidrosis [Unknown]
  - Feeding disorder [Unknown]
  - Blister [Unknown]
  - Burning sensation [Unknown]
  - Swelling face [Unknown]
  - Swelling [Unknown]
  - Constipation [Unknown]
  - Insomnia [Unknown]
  - Fatigue [Unknown]

NARRATIVE: CASE EVENT DATE: 20220704
